FAERS Safety Report 20329599 (Version 1)
Quarter: 2022Q1

REPORT INFORMATION
  Report Type: Spontaneous
  Country: HR (occurrence: HR)
  Receive Date: 20220112
  Receipt Date: 20220112
  Transmission Date: 20220423
  Serious: Yes (Hospitalization)
  Sender: FDA-Public Use
  Company Number: HR-CELLTRION INC.-2022HR000115

PATIENT

DRUGS (3)
  1. INFLIXIMAB [Suspect]
     Active Substance: INFLIXIMAB
     Indication: Colitis ulcerative
     Dosage: 5 MG/KG
  2. INFLIXIMAB [Suspect]
     Active Substance: INFLIXIMAB
     Indication: COVID-19
     Dosage: 10 MG/KG
  3. INFLIXIMAB [Suspect]
     Active Substance: INFLIXIMAB
     Indication: Escherichia infection

REACTIONS (3)
  - Colitis ulcerative [Unknown]
  - Escherichia infection [Unknown]
  - Therapy partial responder [Unknown]
